FAERS Safety Report 14323946 (Version 1)
Quarter: 2017Q4

REPORT INFORMATION
  Report Type: Report from Study
  Country: TR (occurrence: TR)
  Receive Date: 20171226
  Receipt Date: 20171226
  Transmission Date: 20180321
  Serious: Yes (Death, Hospitalization)
  Sender: FDA-Public Use
  Company Number: TR-ROCHE-2028912

PATIENT
  Age: 69 Year
  Sex: Male
  Weight: 62.5 kg

DRUGS (10)
  1. ULCURAN [Concomitant]
     Route: 042
     Dates: start: 20171116, end: 20171116
  2. ATIVAN EXPIDET [Concomitant]
     Indication: INSOMNIA
     Route: 048
     Dates: start: 20171116, end: 20171219
  3. ATEZOLIZUMAB. [Suspect]
     Active Substance: ATEZOLIZUMAB
     Indication: TRANSITIONAL CELL CARCINOMA
     Dosage: MOST RECENT DOSE PRIOR TO SAE ON 16/NOV/2017
     Route: 042
     Dates: start: 20171116
  4. ZYPREXA [Concomitant]
     Active Substance: OLANZAPINE
     Indication: NAUSEA
     Route: 048
     Dates: start: 20171116, end: 20171118
  5. CISPLATIN. [Suspect]
     Active Substance: CISPLATIN
     Indication: TRANSITIONAL CELL CARCINOMA
     Dosage: MOST RECENT DOSE PRIOR TO SAE ON 16/NOV/2017 (112 MG).
     Route: 042
     Dates: start: 20171116
  6. DIDERAL [Concomitant]
     Active Substance: PROPRANOLOL HYDROCHLORIDE
     Indication: HYPERTENSION
     Route: 048
     Dates: start: 2007, end: 20171219
  7. EMEND [Concomitant]
     Active Substance: APREPITANT
     Indication: NAUSEA
     Route: 048
     Dates: start: 20171116, end: 20171118
  8. GEMCITABINE [Suspect]
     Active Substance: GEMCITABINE\GEMCITABINE HYDROCHLORIDE
     Indication: TRANSITIONAL CELL CARCINOMA
     Dosage: MOST RECENT DOSE OF GEMCITABINE PRIOR TO SAE- 16/NOV/2017 (1600 MG)
     Route: 042
     Dates: start: 20171116
  9. DEKORT [Concomitant]
     Active Substance: DEXAMETHASONE
     Indication: HYPERSENSITIVITY
     Route: 042
     Dates: start: 20171116, end: 20171116
  10. SETRON (TURKEY) [Concomitant]
     Indication: NAUSEA
     Route: 042
     Dates: start: 20171116, end: 20171116

REACTIONS (2)
  - Respiratory failure [Fatal]
  - Acute kidney injury [Recovered/Resolved]

NARRATIVE: CASE EVENT DATE: 20171118
